FAERS Safety Report 9325543 (Version 1)
Quarter: 2013Q2

REPORT INFORMATION
  Report Type: Report from Study
  Country: AR (occurrence: AR)
  Receive Date: 20130604
  Receipt Date: 20130604
  Transmission Date: 20140414
  Serious: Yes (Death, Hospitalization)
  Sender: FDA-Public Use
  Company Number: PHHY2012AR103379

PATIENT
  Age: 59 Year
  Sex: Male

DRUGS (2)
  1. ONBREZ [Suspect]
     Indication: PNEUMONIA
     Dosage: 300 UG, QD
     Dates: start: 201207
  2. ONBREZ [Suspect]
     Indication: OFF LABEL USE

REACTIONS (4)
  - Cardiac arrest [Fatal]
  - Pneumonia [Fatal]
  - Chest pain [Fatal]
  - Dyspnoea [Fatal]
